FAERS Safety Report 8992699 (Version 1)
Quarter: 2013Q1

REPORT INFORMATION
  Report Type: Spontaneous
  Country: JP (occurrence: JP)
  Receive Date: 20130101
  Receipt Date: 20130101
  Transmission Date: 20140127
  Serious: Yes (Other)
  Sender: FDA-Public Use
  Company Number: JP-009507513-1212JPN011000

PATIENT
  Sex: 0

DRUGS (1)
  1. ISENTRESS TABLETS 400MG [Suspect]
     Route: 048

REACTIONS (2)
  - Ischaemic hepatitis [Unknown]
  - Pulmonary embolism [Unknown]
